FAERS Safety Report 26000844 (Version 2)
Quarter: 2025Q4

REPORT INFORMATION
  Report Type: Spontaneous
  Country: US (occurrence: US)
  Receive Date: 20251105
  Receipt Date: 20251218
  Transmission Date: 20260118
  Serious: No
  Sender: ANI
  Company Number: US-ANIPHARMA-2025-US-044574

PATIENT
  Age: 87 Year
  Sex: Male

DRUGS (1)
  1. CORTICOTROPIN [Suspect]
     Active Substance: CORTICOTROPIN
     Indication: Gout
     Dosage: 40 UNITS TWICE WEEKLY AS NEEDED
     Route: 058
     Dates: start: 202507

REACTIONS (7)
  - Gout [Not Recovered/Not Resolved]
  - Expired product administered [Unknown]
  - Fall [Unknown]
  - Somnolence [Unknown]
  - Depression [Unknown]
  - Contraindicated product administered [Not Recovered/Not Resolved]
  - Diarrhoea [Unknown]

NARRATIVE: CASE EVENT DATE: 20250701
